FAERS Safety Report 16058938 (Version 1)
Quarter: 2019Q1

REPORT INFORMATION
  Report Type: Spontaneous
  Country: LB (occurrence: LB)
  Receive Date: 20190311
  Receipt Date: 20190311
  Transmission Date: 20190418
  Serious: Yes (Other)
  Sender: FDA-Public Use
  Company Number: PHHY2019LB040930

PATIENT
  Age: 1 Year
  Sex: Male

DRUGS (24)
  1. CCNU [Concomitant]
     Active Substance: LOMUSTINE
     Indication: METASTASES TO SPINE
  2. VINBLASTINE [Suspect]
     Active Substance: VINBLASTINE
     Indication: DIENCEPHALIC SYNDROME OF INFANCY
  3. THIOGUANIN [Concomitant]
     Indication: OPTIC GLIOMA
     Dosage: UNK
     Route: 065
  4. THIOGUANIN [Concomitant]
     Indication: DIENCEPHALIC SYNDROME OF INFANCY
  5. VINBLASTINE [Suspect]
     Active Substance: VINBLASTINE
     Indication: OPTIC GLIOMA
     Dosage: 6 MG/M2, QW
     Route: 065
     Dates: start: 20160404
  6. CCNU [Concomitant]
     Active Substance: LOMUSTINE
     Indication: OPTIC GLIOMA
     Dosage: UNK
     Route: 065
  7. LANVIS [Concomitant]
     Active Substance: THIOGUANINE ANHYDROUS
     Indication: OPTIC GLIOMA
     Dosage: UNK
     Route: 065
  8. CARBOPLATIN. [Suspect]
     Active Substance: CARBOPLATIN
     Indication: OPTIC GLIOMA
     Dosage: 175 MG/M2, QW
     Route: 065
  9. VINBLASTINE [Suspect]
     Active Substance: VINBLASTINE
     Indication: METASTASES TO SPINE
     Dosage: 5 MG/M2, QW
     Route: 065
  10. BEVACIZUMAB. [Suspect]
     Active Substance: BEVACIZUMAB
     Indication: OPTIC GLIOMA
     Dosage: 10 MG/KG, Q2W
     Route: 065
  11. CARBOPLATIN. [Suspect]
     Active Substance: CARBOPLATIN
     Indication: DIENCEPHALIC SYNDROME OF INFANCY
  12. VINCRISTINE [Suspect]
     Active Substance: VINCRISTINE
     Indication: OPTIC GLIOMA
     Dosage: 1.5 MG/M2, QW
     Route: 065
  13. BEVACIZUMAB. [Suspect]
     Active Substance: BEVACIZUMAB
     Indication: METASTASES TO SPINE
  14. PROCARBAZINE [Concomitant]
     Active Substance: PROCARBAZINE
     Indication: OPTIC GLIOMA
     Dosage: UNK
     Route: 065
  15. CCNU [Concomitant]
     Active Substance: LOMUSTINE
     Indication: DIENCEPHALIC SYNDROME OF INFANCY
  16. LANVIS [Concomitant]
     Active Substance: THIOGUANINE ANHYDROUS
     Indication: METASTASES TO SPINE
  17. VINCRISTINE [Suspect]
     Active Substance: VINCRISTINE
     Indication: DIENCEPHALIC SYNDROME OF INFANCY
  18. CARBOPLATIN. [Suspect]
     Active Substance: CARBOPLATIN
     Indication: METASTASES TO SPINE
  19. PROCARBAZINE [Concomitant]
     Active Substance: PROCARBAZINE
     Indication: METASTASES TO SPINE
  20. VINCRISTINE [Suspect]
     Active Substance: VINCRISTINE
     Indication: METASTASES TO SPINE
  21. BEVACIZUMAB. [Suspect]
     Active Substance: BEVACIZUMAB
     Indication: DIENCEPHALIC SYNDROME OF INFANCY
  22. PROCARBAZINE [Concomitant]
     Active Substance: PROCARBAZINE
     Indication: DIENCEPHALIC SYNDROME OF INFANCY
  23. LANVIS [Concomitant]
     Active Substance: THIOGUANINE ANHYDROUS
     Indication: DIENCEPHALIC SYNDROME OF INFANCY
  24. THIOGUANIN [Concomitant]
     Indication: METASTASES TO SPINE

REACTIONS (10)
  - Lung infiltration [Unknown]
  - Retroperitoneal lymphadenopathy [Unknown]
  - Malignant neoplasm progression [Unknown]
  - Metastases to meninges [Unknown]
  - H1N1 influenza [Unknown]
  - Optic glioma [Unknown]
  - Gait disturbance [Unknown]
  - Intracranial hypotension [Unknown]
  - Hydrocephalus [Unknown]
  - Visual impairment [Unknown]

NARRATIVE: CASE EVENT DATE: 201504
